FAERS Safety Report 10186390 (Version 1)
Quarter: 2014Q2

REPORT INFORMATION
  Report Type: Spontaneous
  Country: US (occurrence: US)
  Receive Date: 20140521
  Receipt Date: 20140521
  Transmission Date: 20141212
  Serious: No
  Sender: FDA-Public Use
  Company Number: US-ASTRAZENECA-2013SE65650

PATIENT
  Age: 53 Year
  Sex: Female
  Weight: 79.4 kg

DRUGS (12)
  1. PULMICORT FLEXHALER [Suspect]
     Dosage: 90 MCG, PRESCRIBED TWO PUFFS BID BUT ONLY TOOK ONE PUFF ONCE A DAY
     Route: 055
     Dates: start: 2013, end: 20130809
  2. LEXAPRO [Concomitant]
     Indication: HOT FLUSH
  3. NASONEX [Concomitant]
     Indication: MULTIPLE ALLERGIES
  4. MELATONIN [Concomitant]
     Indication: SLEEP DISORDER
  5. PRIMROSE OIL [Concomitant]
  6. FLAXSEED OIL [Concomitant]
  7. CALCIUM [Concomitant]
  8. VITAMIN D [Concomitant]
  9. ANTIOXIDANTS [Concomitant]
  10. MAGNESIUM [Concomitant]
     Indication: PSORIASIS
  11. COPPER [Concomitant]
     Indication: PSORIASIS
  12. ZINC [Concomitant]
     Indication: PSORIASIS

REACTIONS (7)
  - Psoriasis [Recovering/Resolving]
  - Skin exfoliation [Unknown]
  - Skin haemorrhage [Unknown]
  - Rash [Recovering/Resolving]
  - Rash [Recovering/Resolving]
  - Pruritus [Recovering/Resolving]
  - Intentional product misuse [Unknown]
